FAERS Safety Report 17940410 (Version 1)
Quarter: 2020Q2

REPORT INFORMATION
  Report Type: Spontaneous
  Country: CN (occurrence: CN)
  Receive Date: 20200625
  Receipt Date: 20200625
  Transmission Date: 20200714
  Serious: Yes (Other)
  Sender: FDA-Public Use
  Company Number: CN-SA-2020SA160544

PATIENT

DRUGS (2)
  1. DOCETAXEL. [Suspect]
     Active Substance: DOCETAXEL
     Indication: CHEMOTHERAPY
     Dosage: 90 MG, QD
     Route: 041
     Dates: start: 20200404, end: 20200404
  2. ELOXATIN [Suspect]
     Active Substance: OXALIPLATIN
     Indication: CHEMOTHERAPY
     Dosage: 100 MG, QD
     Route: 041
     Dates: start: 20200404, end: 20200404

REACTIONS (1)
  - Bone marrow failure [Recovering/Resolving]

NARRATIVE: CASE EVENT DATE: 20200410
